FAERS Safety Report 15962004 (Version 1)
Quarter: 2019Q1

REPORT INFORMATION
  Report Type: Spontaneous
  Country: US (occurrence: US)
  Receive Date: 20190214
  Receipt Date: 20190214
  Transmission Date: 20190417
  Serious: Yes (Other)
  Sender: FDA-Public Use
  Company Number: None

PATIENT
  Age: 42 Year
  Sex: Female
  Weight: 51.75 kg

DRUGS (8)
  1. HYDROCORTISONE. [Concomitant]
     Active Substance: HYDROCORTISONE
  2. WELLBUTRIN [Concomitant]
     Active Substance: BUPROPION HYDROCHLORIDE
  3. SYNTHROID [Concomitant]
     Active Substance: LEVOTHYROXINE SODIUM
  4. FENTANYL. [Suspect]
     Active Substance: FENTANYL
     Indication: PRODUCT SUBSTITUTION
     Dosage: ?          QUANTITY:1 PATCH(ES);OTHER FREQUENCY:48 HOURS;?
     Route: 062
     Dates: start: 20190121, end: 20190122
  5. PLAQUINIL [Concomitant]
  6. ADDERALL [Concomitant]
     Active Substance: AMPHETAMINE ASPARTATE\AMPHETAMINE SULFATE\DEXTROAMPHETAMINE SACCHARATE\DEXTROAMPHETAMINE SULFATE
  7. AMORTIZATION [Concomitant]
  8. FENTANYL. [Concomitant]
     Active Substance: FENTANYL

REACTIONS (6)
  - Therapy change [None]
  - Medication error [None]
  - Product substitution issue [None]
  - Insurance issue [None]
  - Hypersensitivity [None]
  - Dermatitis contact [None]

NARRATIVE: CASE EVENT DATE: 20190121
